FAERS Safety Report 5705610-7 (Version None)
Quarter: 2008Q2

REPORT INFORMATION
  Report Type: 
  Country: None (occurrence: None)
  Receive Date: 20080411
  Receipt Date: 20080401
  Transmission Date: 20081010
  Serious: Yes (Hospitalization)
  Sender: FDA-Public Use
  Company Number: 2008BI001184

PATIENT
  Age: 46 Year
  Sex: Female

DRUGS (2)
  1. AVONEX [Suspect]
     Indication: MULTIPLE SCLEROSIS
     Dosage: 30 UG; QW;  IM
     Route: 030
     Dates: start: 20030423
  2. ALLERGY MEDICATIONS (NOS) [Concomitant]

REACTIONS (4)
  - FALL [None]
  - FATIGUE [None]
  - FIBULA FRACTURE [None]
  - WEIGHT DECREASED [None]
